FAERS Safety Report 6580476-4 (Version None)
Quarter: 2010Q1

REPORT INFORMATION
  Report Type: 
  Country: None (occurrence: None)
  Receive Date: 20100212
  Receipt Date: 20100204
  Transmission Date: 20100710
  Serious: Yes (Other)
  Sender: FDA-Public Use
  Company Number: US-ABBOTT-10P-163-0623504-00

PATIENT
  Sex: Male
  Weight: 96.248 kg

DRUGS (7)
  1. LUPRON DEPOT [Suspect]
     Indication: PROSTATE CANCER
     Route: 030
     Dates: start: 20090101
  2. CASODEX [Concomitant]
     Indication: PROSTATE CANCER
     Route: 048
  3. ENABLEX [Concomitant]
     Indication: DRUG USE FOR UNKNOWN INDICATION
     Route: 048
  4. COZAAR [Concomitant]
     Indication: HYPERTENSION
     Route: 048
  5. VYTORIN [Concomitant]
     Indication: DRUG USE FOR UNKNOWN INDICATION
     Dosage: 10/?
     Route: 048
  6. MINOCYCLINE HCL [Concomitant]
     Indication: ACNE
     Route: 048
  7. ZYRTEC [Concomitant]
     Indication: DRUG USE FOR UNKNOWN INDICATION
     Route: 048

REACTIONS (3)
  - CYANOSIS [None]
  - DEEP VEIN THROMBOSIS [None]
  - MENISCUS LESION [None]
